FAERS Safety Report 4951522-6 (Version None)
Quarter: 2006Q1

REPORT INFORMATION
  Report Type: 
  Country: None (occurrence: None)
  Receive Date: 20060317
  Receipt Date: 20060227
  Transmission Date: 20060701
  Serious: Yes (Other)
  Sender: FDA-Public Use
  Company Number: US200602001092

PATIENT
  Age: 9 Year
  Sex: Male

DRUGS (4)
  1. HUMATROPE [Suspect]
     Dosage: 1.0 MG
     Dates: start: 20050126, end: 20060104
  2. CELEXA [Concomitant]
  3. CLONIDINE [Concomitant]
  4. TRAZODIL (TRAZODONE HYDROCHLORIDE) [Concomitant]

REACTIONS (4)
  - COMPLEX PARTIAL SEIZURES [None]
  - DEMYELINATION [None]
  - NERVOUS SYSTEM DISORDER [None]
  - NUCLEAR MAGNETIC RESONANCE IMAGING BRAIN ABNORMAL [None]
